FAERS Safety Report 12170530 (Version 1)
Quarter: 2016Q1

REPORT INFORMATION
  Report Type: Spontaneous
  Country: US (occurrence: US)
  Receive Date: 20160311
  Receipt Date: 20160311
  Transmission Date: 20160526
  Serious: Yes (Death, Hospitalization)
  Sender: FDA-Public Use
  Company Number: US-AXELLIA-000898

PATIENT
  Age: 74 Year
  Sex: Male

DRUGS (4)
  1. METRONIDAZOLE. [Suspect]
     Active Substance: METRONIDAZOLE
     Indication: CLOSTRIDIAL INFECTION
  2. VANCOMYCIN [Suspect]
     Active Substance: VANCOMYCIN
     Indication: CLOSTRIDIAL INFECTION
  3. PIPERACILLIN/TAZOBACTAM [Suspect]
     Active Substance: PIPERACILLIN SODIUM\TAZOBACTAM SODIUM
     Indication: CLOSTRIDIAL INFECTION
  4. CLINDAMYCIN [Suspect]
     Active Substance: CLINDAMYCIN\CLINDAMYCIN PHOSPHATE
     Indication: CLOSTRIDIAL INFECTION

REACTIONS (11)
  - Drug resistance [Not Recovered/Not Resolved]
  - Multiple organ dysfunction syndrome [Fatal]
  - Septic shock [Fatal]
  - Acute kidney injury [None]
  - Alanine aminotransferase increased [None]
  - Diabetes mellitus [None]
  - Glycosylated haemoglobin increased [None]
  - Aspartate aminotransferase increased [None]
  - Enterococcal bacteraemia [None]
  - Metabolic acidosis [None]
  - Blood alkaline phosphatase increased [None]
